FAERS Safety Report 5063300-0 (Version None)
Quarter: 2006Q3

REPORT INFORMATION
  Report Type: 
  Country: None (occurrence: None)
  Receive Date: 20060703
  Receipt Date: 20060516
  Transmission Date: 20061208
  Serious: No
  Sender: FDA-Public Use
  Company Number: 2006PV013889

PATIENT
  Age: 67 Year
  Sex: Male
  Weight: 106.5953 kg

DRUGS (4)
  1. SYMLIN [Suspect]
     Indication: DIABETES MELLITUS NON-INSULIN-DEPENDENT
     Dosage: SEE IMAGE
     Route: 058
     Dates: start: 20060101, end: 20060401
  2. SYMLIN [Suspect]
     Indication: DIABETES MELLITUS NON-INSULIN-DEPENDENT
     Dosage: SEE IMAGE
     Route: 058
     Dates: start: 20060401
  3. HUMALOG N [Concomitant]
  4. NOVOLIN R [Concomitant]

REACTIONS (3)
  - BLOOD GLUCOSE INCREASED [None]
  - CYANOPSIA [None]
  - HYPOGLYCAEMIA [None]
